FAERS Safety Report 9277015 (Version 1)
Quarter: 2013Q2

REPORT INFORMATION
  Report Type: Spontaneous
  Country: DE (occurrence: None)
  Receive Date: 20130501
  Receipt Date: 20130501
  Transmission Date: 20140414
  Serious: Yes (Other)
  Sender: FDA-Public Use
  Company Number: GER/GER/13/0029298

PATIENT
  Age: 32 Year
  Sex: Female
  Weight: 86 kg

DRUGS (6)
  1. IBUPROFEN (IBUPROFEN) [Suspect]
     Indication: ANKYLOSING SPONDYLITIS
     Dosage: 209?1200 MG, 1 D, ORAL
     Route: 048
     Dates: end: 201202
  2. DAIVOBET (DAIVOBET) [Concomitant]
  3. FOLIO FORTE (FOLIC ACID) [Concomitant]
  4. KADEFUNGIN (CLOTRIMAZOLE) [Concomitant]
  5. MIFEGYNE [Concomitant]
  6. CYTOTEC (MISOPROSTOL) [Concomitant]

REACTIONS (6)
  - Oligohydramnios [None]
  - Stillbirth [None]
  - Placental insufficiency [None]
  - Abortion induced [None]
  - Vaginal haemorrhage [None]
  - Foetal growth restriction [None]
